FAERS Safety Report 12442604 (Version 3)
Quarter: 2017Q1

REPORT INFORMATION
  Report Type: Report from Study
  Country: DE (occurrence: DE)
  Receive Date: 20160607
  Receipt Date: 20170131
  Transmission Date: 20170428
  Serious: Yes (Other)
  Sender: FDA-Public Use
  Company Number: PHHY2016DE077206

PATIENT
  Sex: Female
  Weight: 65 kg

DRUGS (8)
  1. TASIGNA [Suspect]
     Active Substance: NILOTINIB
     Indication: CHRONIC MYELOID LEUKAEMIA
     Dosage: 600 MG, QD
     Route: 048
     Dates: start: 20140528, end: 20140812
  2. TASIGNA [Suspect]
     Active Substance: NILOTINIB
     Dosage: 300 MG, QD
     Route: 048
     Dates: start: 20141208, end: 20150107
  3. TRAMAL LONG [Concomitant]
     Active Substance: TRAMADOL
     Indication: PAIN
     Dosage: PRN
     Route: 065
     Dates: start: 20140813, end: 20140911
  4. TASIGNA [Suspect]
     Active Substance: NILOTINIB
     Dosage: 225 MG, QD
     Route: 048
     Dates: start: 20150108
  5. TASIGNA [Suspect]
     Active Substance: NILOTINIB
     Dosage: 75 NG, QD
     Route: 048
     Dates: start: 20140819, end: 20141124
  6. TASIGNA [Suspect]
     Active Substance: NILOTINIB
     Dosage: 150 MG, QD
     Route: 048
     Dates: start: 20141125, end: 20141207
  7. VITAMIN B12 [Concomitant]
     Active Substance: CYANOCOBALAMIN
     Indication: VITAMIN B12 DEFICIENCY
     Dosage: 1000 UG, QD
     Route: 065
     Dates: start: 20140814, end: 20140911
  8. PREDNISOLONE. [Concomitant]
     Active Substance: PREDNISOLONE
     Indication: HAEMOLYSIS
     Dosage: 100 MG, QD
     Route: 065
     Dates: start: 20140813, end: 20140911

REACTIONS (3)
  - Thrombocytopenia [Recovered/Resolved]
  - Leukopenia [Recovered/Resolved]
  - Leukocytosis [Unknown]

NARRATIVE: CASE EVENT DATE: 20140701
